FAERS Safety Report 14334673 (Version 1)
Quarter: 2017Q4

REPORT INFORMATION
  Report Type: Spontaneous
  Country: NL (occurrence: NL)
  Receive Date: 20171228
  Receipt Date: 20171228
  Transmission Date: 20180321
  Serious: Yes (Hospitalization)
  Sender: FDA-Public Use
  Company Number: NL-MYLANLABS-2017M1082538

PATIENT
  Age: 42 Year
  Sex: Female
  Weight: 65 kg

DRUGS (5)
  1. OMEPRAZOL                          /00661201/ [Concomitant]
     Active Substance: OMEPRAZOLE
     Indication: PRODUCT USED FOR UNKNOWN INDICATION
     Dosage: 40 MG, QD, 1DD1
     Route: 065
  2. MACROGOL MYLAN [Suspect]
     Active Substance: POLYETHYLENE GLYCOL 4000
     Indication: CONSTIPATION
     Dosage: 1 DF, UNK, EENMALIG EEN ZAKJE
     Route: 065
  3. METHYLFENIDAAT HCL [Concomitant]
     Indication: PRODUCT USED FOR UNKNOWN INDICATION
     Dosage: 5 MG, QD, 1DD1 AN
     Route: 065
  4. METHYLFENIDAAT HCL MYLAN RETARD 54 MG, TABLETTEN MET VERLENGDE AFGIFTE [Suspect]
     Active Substance: METHYLPHENIDATE HYDROCHLORIDE
     Indication: ATTENTION DEFICIT/HYPERACTIVITY DISORDER
     Dosage: 54 MG, QD, 1D1T
     Route: 065
     Dates: start: 20171102, end: 20171105
  5. MELATONINE [Concomitant]
     Active Substance: MELATONIN
     Indication: PRODUCT USED FOR UNKNOWN INDICATION
     Dosage: 0.3 MG, QD, 1DD1 AN
     Route: 065

REACTIONS (5)
  - Chest pain [None]
  - Hypersensitivity [Recovered/Resolved]
  - Flushing [Recovered/Resolved]
  - Ocular hyperaemia [Recovered/Resolved]
  - Headache [Recovered/Resolved]

NARRATIVE: CASE EVENT DATE: 20171104
